FAERS Safety Report 26213005 (Version 1)
Quarter: 2025Q4

REPORT INFORMATION
  Report Type: Spontaneous
  Country: US (occurrence: US)
  Receive Date: 20251230
  Receipt Date: 20251230
  Transmission Date: 20260117
  Serious: No
  Sender: TORRENT PHARMA INC.
  Company Number: US-TORRENT-00014683

PATIENT
  Sex: Female

DRUGS (1)
  1. ESCITALOPRAM [Suspect]
     Active Substance: ESCITALOPRAM OXALATE
     Indication: Anxiety disorder
     Dosage: UNKNOWN
     Route: 065
     Dates: start: 20240810

REACTIONS (5)
  - Anxiety [Unknown]
  - Irritability [Unknown]
  - Hyperacusis [Unknown]
  - Anger [Unknown]
  - Therapy interrupted [Unknown]
